FAERS Safety Report 8887011 (Version 2)
Quarter: 2012Q4

REPORT INFORMATION
  Report Type: Report from Study
  Country: US (occurrence: US)
  Receive Date: 20121105
  Receipt Date: 20121116
  Transmission Date: 20130627
  Serious: Yes (Hospitalization)
  Sender: FDA-Public Use
  Company Number: US-ROCHE-1086949

PATIENT
  Age: 18 Year
  Sex: Female
  Weight: 44.9 kg

DRUGS (2)
  1. BEVACIZUMAB [Suspect]
     Indication: GLIOMA
     Dosage: Last dose prior to sae on : 04/Jun/2012
     Route: 042
     Dates: start: 20111004
  2. TEMOZOLOMIDE [Suspect]
     Indication: GLIOMA
     Dosage: Last dose prior to sae on : 25/May/2012
     Route: 048
     Dates: start: 20111004

REACTIONS (4)
  - Syncope [Recovered/Resolved]
  - Orthostatic hypotension [Recovered/Resolved]
  - Dehydration [Recovered/Resolved]
  - Nystagmus [Recovered/Resolved]
